FAERS Safety Report 20932596 (Version 7)
Quarter: 2024Q3

REPORT INFORMATION
  Report Type: Spontaneous
  Country: JP (occurrence: JP)
  Receive Date: 20220608
  Receipt Date: 20240710
  Transmission Date: 20241016
  Serious: Yes (Hospitalization, Other)
  Sender: BRISTOL MYERS SQUIBB
  Company Number: JP-BRISTOL-MYERS SQUIBB COMPANY-2022-053520

PATIENT
  Age: 74 Year
  Sex: Female

DRUGS (2)
  1. YERVOY [Suspect]
     Active Substance: IPILIMUMAB
     Indication: Non-small cell lung cancer recurrent
     Route: 041
     Dates: start: 20220209
  2. OPDIVO [Suspect]
     Active Substance: NIVOLUMAB
     Indication: Non-small cell lung cancer recurrent
     Route: 041
     Dates: start: 20220209

REACTIONS (4)
  - Non-small cell lung cancer [Unknown]
  - Immune-mediated enterocolitis [Not Recovered/Not Resolved]
  - Bronchopulmonary aspergillosis [Not Recovered/Not Resolved]
  - Cytomegalovirus test positive [Recovered/Resolved]

NARRATIVE: CASE EVENT DATE: 20220323
